FAERS Safety Report 4548319-8 (Version None)
Quarter: 2005Q1

REPORT INFORMATION
  Report Type: 
  Country: None (occurrence: None)
  Receive Date: 20050110
  Receipt Date: 20041115
  Transmission Date: 20050727
  Serious: Yes (Hospitalization)
  Sender: FDA-Public Use
  Company Number: US-MERCK-0411USA02530

PATIENT
  Age: 80 Year
  Sex: Female
  Weight: 57 kg

DRUGS (11)
  1. VIOXX [Suspect]
     Indication: BACK PAIN
     Route: 048
     Dates: start: 20031101
  2. ATENOLOL [Concomitant]
     Route: 048
  3. HYDROCHLOROTHIAZIDE [Concomitant]
     Route: 048
  4. ASPIRIN [Concomitant]
     Route: 048
  5. LIPITOR [Concomitant]
     Route: 048
  6. CALCIUM (UNSPECIFIED) AND VITAMIN D (UNSPECIFIED) [Concomitant]
     Route: 048
  7. MULTIVITAMIN [Concomitant]
     Route: 048
  8. OCUVITE [Concomitant]
     Route: 065
  9. LISINOPRIL [Concomitant]
     Route: 048
  10. GLIPIZIDE [Concomitant]
     Route: 048
  11. FOSAMAX [Concomitant]
     Route: 048

REACTIONS (6)
  - CAROTID BRUIT [None]
  - CEREBRAL ARTERY OCCLUSION [None]
  - CONTUSION [None]
  - FALL [None]
  - HEAD INJURY [None]
  - HYPOKALAEMIA [None]
